FAERS Safety Report 7426296-X (Version None)
Quarter: 2011Q2

REPORT INFORMATION
  Report Type: 
  Country: None (occurrence: None)
  Receive Date: 20110420
  Receipt Date: 20110414
  Transmission Date: 20111010
  Serious: Yes (Other)
  Sender: FDA-Public Use
  Company Number: A0923004A

PATIENT
  Age: 50 Year
  Sex: Male

DRUGS (3)
  1. METHOTREXATE [Concomitant]
  2. LOVAZA [Suspect]
     Indication: BONE DENSITOMETRY
     Dosage: 4CAP PER DAY
     Route: 048
     Dates: start: 20100401
  3. REMICADE [Concomitant]

REACTIONS (1)
  - HEPATIC ENZYME INCREASED [None]
